FAERS Safety Report 17264003 (Version 1)
Quarter: 2020Q1

REPORT INFORMATION
  Report Type: Spontaneous
  Country: US (occurrence: US)
  Receive Date: 20200113
  Receipt Date: 20200113
  Transmission Date: 20200409
  Serious: No
  Sender: FDA-Public Use
  Company Number: None

PATIENT
  Age: 65 Year
  Sex: Male
  Weight: 76.77 kg

DRUGS (5)
  1. DEXAMETHASONE 10MG IVPB [Concomitant]
     Dates: start: 20200110, end: 20200110
  2. FAMOTIDINE 20MG IVPB [Concomitant]
     Dates: start: 20200110, end: 20200110
  3. BENADRYL 25MG IVPB [Concomitant]
     Dates: start: 20200110, end: 20200110
  4. PACLITAXEL 300MG/50ML [Suspect]
     Active Substance: PACLITAXEL
     Indication: NEUROENDOCRINE TUMOUR
     Dosage: ?          OTHER FREQUENCY:ONCE;?
     Route: 042
     Dates: start: 20200110, end: 20200110
  5. GRANISETRON 1MG IVPB [Concomitant]
     Dates: start: 20200110, end: 20200110

REACTIONS (2)
  - Dyspnoea [None]
  - Erythema [None]

NARRATIVE: CASE EVENT DATE: 20200110
